FAERS Safety Report 20194494 (Version 1)
Quarter: 2021Q4

REPORT INFORMATION
  Report Type: Report from Study
  Country: TW (occurrence: TW)
  Receive Date: 20211216
  Receipt Date: 20211216
  Transmission Date: 20220304
  Serious: Yes (Other)
  Sender: FDA-Public Use
  Company Number: TW-MYLANLABS-2021M1093427

PATIENT
  Age: 1 Year
  Sex: Female

DRUGS (7)
  1. CARBOPLATIN [Suspect]
     Active Substance: CARBOPLATIN
     Indication: Hepatoblastoma
     Dosage: 5 COURSES; CARBO/VP REGIMEN
     Route: 065
  2. CARBOPLATIN [Suspect]
     Active Substance: CARBOPLATIN
     Dosage: 4 COURSES; VJ5 REGIMEN)
     Route: 065
  3. EPIRUBICIN [Suspect]
     Active Substance: EPIRUBICIN
     Indication: Hepatoblastoma
     Dosage: 4 COURSES; CE REGIMEN
     Route: 065
  4. CISPLATIN [Suspect]
     Active Substance: CISPLATIN
     Indication: Hepatoblastoma
     Dosage: 4 COURSES; CE REGIMEN
     Route: 065
  5. ETOPOSIDE [Suspect]
     Active Substance: ETOPOSIDE
     Indication: Hepatoblastoma
     Dosage: 5 COURSES; CARBO/VP REGIMEN
     Route: 065
  6. VINCRISTINE [Suspect]
     Active Substance: VINCRISTINE
     Indication: Hepatoblastoma
     Dosage: 4 COURSES; VJ5 REGIMEN)
     Route: 065
  7. FLUOROURACIL [Suspect]
     Active Substance: FLUOROURACIL
     Indication: Hepatoblastoma
     Dosage: 4 COURSES; VJ5 REGIMEN)
     Route: 065

REACTIONS (5)
  - Fanconi syndrome acquired [Recovered/Resolved]
  - Myelosuppression [Recovered/Resolved]
  - Hypoacusis [Unknown]
  - Sepsis [Unknown]
  - Off label use [Unknown]
